FAERS Safety Report 5347267-3 (Version None)
Quarter: 2007Q2

REPORT INFORMATION
  Report Type: 
  Country: None (occurrence: None)
  Receive Date: 20070509
  Receipt Date: 20061019
  Transmission Date: 20071010
  Serious: Yes (Hospitalization)
  Sender: FDA-Public Use
  Company Number: 465273

PATIENT
  Age: 46 Year
  Sex: Male
  Weight: 79.8 kg

DRUGS (5)
  1. FUZEON [Suspect]
     Indication: HIV INFECTION
     Dosage: 2 PER DAY SUBCUTANEOUS
     Route: 058
     Dates: start: 20060321
  2. TIPRANAVIR (TIPRANAVIR) [Concomitant]
  3. RITONAVIR (RITONAVIR) [Concomitant]
  4. ABACAVIR/LAMIVUDINE (ABACAVIR SUCCINATE/LAMIVUDINE) [Concomitant]
  5. TENOFOVIR (TENOFOVIR) [Concomitant]

REACTIONS (1)
  - PNEUMONIA [None]
